FAERS Safety Report 8059741-X (Version None)
Quarter: 2012Q1

REPORT INFORMATION
  Report Type: 
  Country: None (occurrence: None)
  Receive Date: 20120119
  Receipt Date: 20120119
  Transmission Date: 20120608
  Serious: Yes (Hospitalization)
  Sender: FDA-Public Use
  Company Number: None

PATIENT
  Age: 66 Year
  Sex: Female
  Weight: 95 kg

DRUGS (18)
  1. ALBUTEROL [Concomitant]
  2. NEXIUM [Concomitant]
  3. IMDUR [Concomitant]
  4. COUMADIN [Suspect]
     Indication: PULMONARY EMBOLISM
     Dosage: 3MG QPM PO CHRONIC
     Route: 048
  5. SIMVASTATIN [Concomitant]
  6. MORPHINE [Concomitant]
  7. TRAZODONE HCL [Concomitant]
  8. ADVAIR DISKUS 100/50 [Concomitant]
  9. DICLOFENAC [Concomitant]
  10. IPRATROPIUM BROMIDE [Concomitant]
  11. DIAZEPAM [Concomitant]
  12. DILTIAZEM HCL [Concomitant]
  13. DOXEPIN [Concomitant]
  14. SINGULAIR [Concomitant]
  15. CYMBALTA [Concomitant]
  16. NASONEX [Concomitant]
  17. CLARITIN [Concomitant]
  18. ALENDRONATE SODIUM [Concomitant]

REACTIONS (4)
  - HAEMOPTYSIS [None]
  - BRONCHITIS [None]
  - INTERNATIONAL NORMALISED RATIO INCREASED [None]
  - DRUG INTERACTION [None]
